FAERS Safety Report 8460635-6 (Version None)
Quarter: 2012Q2

REPORT INFORMATION
  Report Type: 
  Country: None (occurrence: None)
  Receive Date: 20120622
  Receipt Date: 20120611
  Transmission Date: 20120825
  Serious: No
  Sender: FDA-Public Use
  Company Number: US-ASTRAZENECA-2012SE38913

PATIENT
  Age: 32 Year
  Sex: Female
  Weight: 56.7 kg

DRUGS (4)
  1. SEROQUEL [Suspect]
     Indication: BIPOLAR DISORDER
     Route: 048
  2. SEROQUEL [Suspect]
     Route: 048
     Dates: start: 20120401
  3. SEROQUEL [Suspect]
     Route: 048
  4. PROZAC [Concomitant]
     Indication: DEPRESSION

REACTIONS (4)
  - DRUG PRESCRIBING ERROR [None]
  - INCORRECT DRUG DOSAGE FORM ADMINISTERED [None]
  - SOMNOLENCE [None]
  - FATIGUE [None]
